FAERS Safety Report 7962258-1 (Version None)
Quarter: 2011Q4

REPORT INFORMATION
  Report Type: 
  Country: None (occurrence: None)
  Receive Date: 20111207
  Receipt Date: 20111202
  Transmission Date: 20120403
  Serious: Yes (Other)
  Sender: FDA-Public Use
  Company Number: PHHY2011AR106157

PATIENT
  Sex: Male

DRUGS (2)
  1. DAXAS [Suspect]
     Dosage: UNK UKN, UNK
  2. ONBREZ [Suspect]
     Indication: CHRONIC OBSTRUCTIVE PULMONARY DISEASE
     Dosage: 150 UG, QD
     Dates: start: 20111105

REACTIONS (5)
  - PAIN [None]
  - MUSCLE DISORDER [None]
  - WEIGHT DECREASED [None]
  - HEADACHE [None]
  - MUSCLE ATROPHY [None]
